FAERS Safety Report 25840365 (Version 3)
Quarter: 2025Q4

REPORT INFORMATION
  Report Type: Spontaneous
  Country: US (occurrence: US)
  Receive Date: 20250924
  Receipt Date: 20251104
  Transmission Date: 20260117
  Serious: No
  Sender: MICRO LABS LIMITED
  Company Number: US-862174955-ML2025-04759

PATIENT
  Age: 86 Year
  Sex: Male
  Weight: 88 kg

DRUGS (1)
  1. TRAVOPROST [Suspect]
     Active Substance: TRAVOPROST
     Indication: Glaucoma
     Dosage: DOSE: ONE DROP IN EACH EYE ?FREQUENCY: ONCE DAILY AT BEDTIME?THE PATIENT HAS BEEN USING THIS PRODUCT
     Route: 047

REACTIONS (2)
  - Product dose omission issue [Unknown]
  - Product packaging quantity issue [Unknown]
